FAERS Safety Report 20769354 (Version 1)
Quarter: 2022Q2

REPORT INFORMATION
  Report Type: Spontaneous
  Country: NP (occurrence: NP)
  Receive Date: 20220429
  Receipt Date: 20220429
  Transmission Date: 20220720
  Serious: Yes (Hospitalization, Other)
  Sender: FDA-Public Use
  Company Number: NP-MLMSERVICE-20220414-3503142-1

PATIENT
  Age: 85 Year
  Sex: Male

DRUGS (2)
  1. CLOBAZAM [Suspect]
     Active Substance: CLOBAZAM
     Indication: Depression
     Dosage: 10 YEARS
  2. SERTRALINE [Suspect]
     Active Substance: SERTRALINE HYDROCHLORIDE
     Indication: Depression
     Dosage: 10 YEARS

REACTIONS (1)
  - Chilaiditi^s syndrome [Recovered/Resolved]
